FAERS Safety Report 9271247 (Version 1)
Quarter: 2013Q2

REPORT INFORMATION
  Report Type: Spontaneous
  Country: US (occurrence: US)
  Receive Date: 20130506
  Receipt Date: 20130506
  Transmission Date: 20140414
  Serious: Yes (Congenital Anomaly, Other)
  Sender: FDA-Public Use
  Company Number: US-ELI_LILLY_AND_COMPANY-US201304008015

PATIENT
  Age: 0 Year
  Sex: 0

DRUGS (4)
  1. PROZAC [Suspect]
     Dosage: 1 DF, UNKNOWN
     Route: 064
  2. TYLENOL EXTRA STRENGTH [Concomitant]
     Dosage: 1 DF, PRN
     Route: 064
  3. PROGESTERONE [Concomitant]
     Dosage: 50 MG, BID
     Route: 064
  4. AMOX [Concomitant]
     Dosage: 500 MG, TID
     Route: 064

REACTIONS (7)
  - Cleft palate [Unknown]
  - Congenital skin dimples [Unknown]
  - Otitis media chronic [Unknown]
  - Foetal growth restriction [Unknown]
  - Premature baby [Unknown]
  - Hyperbilirubinaemia [Unknown]
  - Foetal exposure timing unspecified [Unknown]
